FAERS Safety Report 10955518 (Version 1)
Quarter: 2015Q1

REPORT INFORMATION
  Report Type: Spontaneous
  Country: US (occurrence: None)
  Receive Date: 20150226
  Receipt Date: 20150226
  Transmission Date: 20150721
  Serious: Yes (Hospitalization)
  Sender: FDA-Public Use
  Company Number: TPA2011A01269

PATIENT
  Age: 74 Year
  Sex: Male
  Weight: 96.62 kg

DRUGS (2)
  1. ACTOS [Suspect]
     Active Substance: PIOGLITAZONE HYDROCHLORIDE
     Indication: TYPE 2 DIABETES MELLITUS
     Route: 048
     Dates: start: 20050325, end: 201103
  2. AMARYL [Concomitant]
     Active Substance: GLIMEPIRIDE

REACTIONS (5)
  - Orthopnoea [None]
  - Oedema [None]
  - Hyperhidrosis [None]
  - Cardiac failure congestive [None]
  - Dyspnoea [None]

NARRATIVE: CASE EVENT DATE: 201103
